FAERS Safety Report 10013480 (Version 5)
Quarter: 2014Q2

REPORT INFORMATION
  Report Type: Spontaneous
  Country: US (occurrence: US)
  Receive Date: 20140314
  Receipt Date: 20140625
  Transmission Date: 20141212
  Serious: Yes (Hospitalization, Other)
  Sender: FDA-Public Use
  Company Number: US-GILEAD-2014-0096635

PATIENT
  Sex: Male

DRUGS (3)
  1. LETAIRIS [Suspect]
     Indication: PULMONARY HYPERTENSION
     Dosage: 10 MG, QD
     Route: 065
     Dates: start: 20120622
  2. REMODULIN [Concomitant]
  3. ADCIRCA [Concomitant]

REACTIONS (5)
  - Coma [Recovered/Resolved]
  - Pickwickian syndrome [Unknown]
  - Unevaluable event [Recovering/Resolving]
  - Dyspnoea [Recovering/Resolving]
  - Carbon dioxide increased [Unknown]
